FAERS Safety Report 4472881-7 (Version None)
Quarter: 2004Q4

REPORT INFORMATION
  Report Type: 
  Country: None (occurrence: None)
  Receive Date: 20041012
  Receipt Date: 20041012
  Transmission Date: 20050328
  Serious: Yes (Other)
  Sender: FDA-Public Use
  Company Number: None

PATIENT
  Age: 1 Year
  Sex: Male

DRUGS (1)
  1. RITONAVIR [Suspect]

REACTIONS (3)
  - RASH MACULO-PAPULAR [None]
  - TACHYCARDIA [None]
  - TACHYPNOEA [None]
